FAERS Safety Report 7132811-6 (Version None)
Quarter: 2010Q4

REPORT INFORMATION
  Report Type: 
  Country: None (occurrence: None)
  Receive Date: 20101202
  Receipt Date: 20101117
  Transmission Date: 20110411
  Serious: No
  Sender: FDA-Public Use
  Company Number: US-PFIZER INC-US-WYE-H17612510

PATIENT
  Sex: Female
  Weight: 68 kg

DRUGS (7)
  1. EFFEXOR XR [Suspect]
     Indication: DEPRESSION
     Dosage: 37.5 MG, 2X/DAY
     Route: 048
  2. EFFEXOR XR [Suspect]
     Indication: PANIC DISORDER
  3. VENLAFAXINE HYDROCHLORIDE [Suspect]
     Indication: DEPRESSION
  4. VENLAFAXINE HYDROCHLORIDE [Suspect]
     Indication: PANIC DISORDER
  5. BUPROPION [Concomitant]
  6. DULOXETINE [Concomitant]
  7. PSEUDOEPHEDRINE [Concomitant]
     Route: 065

REACTIONS (4)
  - DRUG EFFECT DECREASED [None]
  - DRUG WITHDRAWAL SYNDROME [None]
  - HEADACHE [None]
  - NIGHTMARE [None]
